FAERS Safety Report 4363379-5 (Version None)
Quarter: 2004Q2

REPORT INFORMATION
  Report Type: 
  Country: None (occurrence: None)
  Receive Date: 20040517
  Receipt Date: 20040311
  Transmission Date: 20050107
  Serious: No
  Sender: FDA-Public Use
  Company Number: S04-USA-01532-01

PATIENT
  Age: 93 Year
  Sex: Female

DRUGS (10)
  1. NAMENDA [Suspect]
     Indication: VASCULAR DEMENTIA
     Dosage: 5 MG QD PO
     Route: 048
     Dates: start: 20040227, end: 20040304
  2. NAMENDA [Suspect]
     Indication: VASCULAR DEMENTIA
     Dosage: 10 MG QD PO
     Route: 048
     Dates: start: 20040305, end: 20040309
  3. ARICEPT [Concomitant]
  4. RITALIN [Concomitant]
  5. SINEMET [Concomitant]
  6. CARDIZEM [Concomitant]
  7. ZESTRIL [Concomitant]
  8. SYNTHROID [Concomitant]
  9. CARDURA [Concomitant]
  10. PROCRIT (ERYTHROPOIETIN) [Concomitant]

REACTIONS (4)
  - ABNORMAL BEHAVIOUR [None]
  - AGGRESSION [None]
  - DELUSION [None]
  - DYSPHONIA [None]
